FAERS Safety Report 6444302-6 (Version None)
Quarter: 2009Q4

REPORT INFORMATION
  Report Type: 
  Country: None (occurrence: None)
  Receive Date: 20091118
  Receipt Date: 20091104
  Transmission Date: 20100525
  Serious: Yes (Death)
  Sender: FDA-Public Use
  Company Number: PHHO2009PL11400

PATIENT
  Sex: Male

DRUGS (3)
  1. BLINDED LMF237 LMF237+TAB [Suspect]
     Indication: TYPE 2 DIABETES MELLITUS
     Dosage: CODE NOT BROKEN
     Route: 048
     Dates: start: 20090616
  2. BLINDED METFORMIN COMP-MTF+ [Suspect]
     Indication: TYPE 2 DIABETES MELLITUS
     Dosage: CODE NOT BROKEN
     Route: 048
     Dates: start: 20090616
  3. BLINDED NO TREATMENT RECEIVED NOMED [Suspect]
     Indication: TYPE 2 DIABETES MELLITUS
     Dosage: CODE NOT BROKEN
     Route: 048
     Dates: start: 20090616

REACTIONS (10)
  - ASTHENIA [None]
  - CONCOMITANT DISEASE PROGRESSION [None]
  - DRY MOUTH [None]
  - FAECES DISCOLOURED [None]
  - GASTRIC HAEMORRHAGE [None]
  - GASTRIC ULCER [None]
  - HAEMOGLOBIN DECREASED [None]
  - HEPATIC ENCEPHALOPATHY [None]
  - OESOPHAGEAL VARICES HAEMORRHAGE [None]
  - VARICES OESOPHAGEAL [None]
